FAERS Safety Report 8036336-5 (Version None)
Quarter: 2012Q1

REPORT INFORMATION
  Report Type: 
  Country: None (occurrence: None)
  Receive Date: 20120111
  Receipt Date: 20111113
  Transmission Date: 20120608
  Serious: No
  Sender: FDA-Public Use
  Company Number: US-GLAXOSMITHKLINE-A0953956A

PATIENT

DRUGS (1)
  1. JALYN [Suspect]
     Route: 065

REACTIONS (1)
  - ANAL PRURITUS [None]
